FAERS Safety Report 22633345 (Version 1)
Quarter: 2023Q2

REPORT INFORMATION
  Report Type: Spontaneous
  Country: CN (occurrence: CN)
  Receive Date: 20230623
  Receipt Date: 20230623
  Transmission Date: 20230721
  Serious: Yes (Hospitalization, Other)
  Sender: FDA-Public Use
  Company Number: CN-ASTELLAS-2023US018425

PATIENT
  Age: 29 Year
  Sex: Female

DRUGS (22)
  1. TACROLIMUS [Suspect]
     Active Substance: TACROLIMUS
     Indication: Small intestine transplant
     Route: 065
     Dates: start: 202208, end: 202208
  2. TACROLIMUS [Suspect]
     Active Substance: TACROLIMUS
     Dosage: 6 MG, UNKNOWN FREQ. (DURING OPERATION)
     Route: 065
     Dates: start: 20220803, end: 20220803
  3. TACROLIMUS [Suspect]
     Active Substance: TACROLIMUS
     Dosage: 3 MG, UNKNOWN FREQ. (POST OPERATION)
     Route: 065
     Dates: start: 202208
  4. MICAFUNGIN [Suspect]
     Active Substance: MICAFUNGIN SODIUM
     Indication: Klebsiella infection
     Route: 065
     Dates: start: 202208, end: 202208
  5. MICAFUNGIN [Suspect]
     Active Substance: MICAFUNGIN SODIUM
     Indication: Bacterial infection
  6. MICAFUNGIN [Suspect]
     Active Substance: MICAFUNGIN SODIUM
     Indication: Empyema
  7. RITUXIMAB [Concomitant]
     Active Substance: RITUXIMAB
     Indication: Small intestine transplant
     Route: 065
     Dates: start: 202208, end: 202208
  8. THYMOCYTE IMMUNE GLOBULIN NOS [Concomitant]
     Active Substance: THYMOCYTE IMMUNE GLOBULIN NOS
     Indication: Small intestine transplant
     Route: 065
     Dates: start: 202208, end: 202208
  9. THYMOCYTE IMMUNE GLOBULIN NOS [Concomitant]
     Active Substance: THYMOCYTE IMMUNE GLOBULIN NOS
     Dosage: 50 MG, UNKNOWN FREQ. (STARTED DURING OPERATION)
     Route: 065
     Dates: start: 20220803
  10. HUMAN IMMUNOGLOBULIN G [Concomitant]
     Active Substance: HUMAN IMMUNOGLOBULIN G
     Indication: Small intestine transplant
     Route: 065
     Dates: start: 202208
  11. METHYLPREDNISOLONE [Concomitant]
     Active Substance: METHYLPREDNISOLONE
     Indication: Small intestine transplant
     Route: 065
     Dates: start: 202208, end: 202208
  12. METHYLPREDNISOLONE [Concomitant]
     Active Substance: METHYLPREDNISOLONE
     Dosage: 1000 MG, UNKNOWN FREQ. (DURING OPERATION)
     Route: 065
     Dates: start: 20220803, end: 20220803
  13. METHYLPREDNISOLONE [Concomitant]
     Active Substance: METHYLPREDNISOLONE
     Dosage: 500 MG, UNKNOWN FREQ. (POST OPERATION)
     Route: 065
     Dates: start: 202208, end: 202208
  14. METHYLPREDNISOLONE [Concomitant]
     Active Substance: METHYLPREDNISOLONE
     Dosage: UNK UNK, UNKNOWN FREQ. (TAPERED DOSES)
     Route: 065
     Dates: start: 202208
  15. CEFOPERAZONE\SULBACTAM [Concomitant]
     Active Substance: CEFOPERAZONE\SULBACTAM
     Indication: Infection prophylaxis
     Route: 065
     Dates: start: 202208, end: 202208
  16. CEFOPERAZONE\SULBACTAM [Concomitant]
     Active Substance: CEFOPERAZONE\SULBACTAM
     Dosage: 6 G, UNKNOWN FREQ. (DURING OPERATION)
     Route: 065
     Dates: start: 20220803, end: 20220803
  17. CEFOPERAZONE\SULBACTAM [Concomitant]
     Active Substance: CEFOPERAZONE\SULBACTAM
     Route: 065
     Dates: start: 202208
  18. GANCICLOVIR [Concomitant]
     Active Substance: GANCICLOVIR
     Indication: Infection prophylaxis
     Dosage: 0.4 G, UNKNOWN FREQ.
     Route: 065
     Dates: start: 202208, end: 202208
  19. GANCICLOVIR [Concomitant]
     Active Substance: GANCICLOVIR
     Dosage: 0.4 G, UNKNOWN FREQ. (STARTED DURING OPERATION)
     Route: 065
     Dates: start: 20220803, end: 202208
  20. GANCICLOVIR [Concomitant]
     Active Substance: GANCICLOVIR
     Dosage: 0.35 G, UNKNOWN FREQ.
     Route: 065
     Dates: start: 202208
  21. HEPARIN SODIUM [Concomitant]
     Active Substance: HEPARIN SODIUM
     Indication: Anticoagulant therapy
     Dosage: UNK UNK, UNKNOWN FREQ.
     Route: 065
     Dates: start: 202208
  22. HEPARIN SODIUM [Concomitant]
     Active Substance: HEPARIN SODIUM
     Indication: Thrombosis prophylaxis

REACTIONS (7)
  - Klebsiella infection [Unknown]
  - Bacterial infection [Unknown]
  - Post procedural infection [Unknown]
  - Pelvic infection [Unknown]
  - Empyema [Unknown]
  - Sepsis [Unknown]
  - Off label use [Unknown]

NARRATIVE: CASE EVENT DATE: 20220801
